FAERS Safety Report 5902747-4 (Version None)
Quarter: 2008Q3

REPORT INFORMATION
  Report Type: 
  Country: None (occurrence: None)
  Receive Date: 20080930
  Receipt Date: 20080916
  Transmission Date: 20090109
  Serious: Yes (Hospitalization)
  Sender: FDA-Public Use
  Company Number: US-BAYER-200821689NA

PATIENT
  Age: 61 Year
  Sex: Female
  Weight: 49 kg

DRUGS (27)
  1. SORAFENIB OR PLACEBO [Suspect]
     Indication: BREAST CANCER METASTATIC
     Dosage: TOTAL DAILY DOSE: 800 MG  UNIT DOSE: 200 MG
     Route: 048
     Dates: start: 20080417, end: 20080612
  2. SORAFENIB OR PLACEBO [Suspect]
     Dosage: TOTAL DAILY DOSE: 200 MG  UNIT DOSE: 200 MG
     Route: 048
     Dates: start: 20080619, end: 20080710
  3. SORAFENIB OR PLACEBO [Suspect]
     Dosage: TOTAL DAILY DOSE: 400 MG  UNIT DOSE: 200 MG
     Route: 048
     Dates: start: 20080710
  4. TAXOL [Suspect]
     Indication: BREAST CANCER METASTATIC
     Dosage: AS USED: 65 MG/M2
     Route: 042
     Dates: start: 20080501
  5. TAXOL [Suspect]
     Dosage: AS USED: 90 MG/M2
     Route: 042
     Dates: start: 20080417, end: 20080424
  6. MULTI-VITAMIN [Concomitant]
     Dates: start: 20080324
  7. DECADRON [Concomitant]
     Indication: PROPHYLAXIS OF NAUSEA AND VOMITING
     Dosage: AS USED: 20 MG
     Route: 042
     Dates: start: 20080417, end: 20080417
  8. DECADRON [Concomitant]
     Dosage: AS USED: 16 MG
     Route: 048
     Dates: start: 20080416, end: 20080416
  9. ANZEMET [Concomitant]
     Indication: PROPHYLAXIS OF NAUSEA AND VOMITING
     Route: 042
     Dates: start: 20080417, end: 20080417
  10. TAGAMET [Concomitant]
     Indication: PROPHYLAXIS OF NAUSEA AND VOMITING
     Route: 042
     Dates: start: 20080417, end: 20080417
  11. BENADRYL [Concomitant]
     Indication: PROPHYLAXIS OF NAUSEA AND VOMITING
     Route: 042
     Dates: start: 20080417, end: 20080417
  12. ZOFRAN [Concomitant]
     Indication: PROPHYLAXIS OF NAUSEA AND VOMITING
     Route: 042
     Dates: start: 20080417, end: 20080417
  13. ZOFRAN [Concomitant]
     Route: 048
     Dates: start: 20080505, end: 20080505
  14. ZOMETA [Concomitant]
     Indication: SKELETAL INJURY
     Route: 042
     Dates: start: 20080417
  15. COMPAZINE [Concomitant]
     Indication: NAUSEA
     Route: 048
     Dates: start: 20080417
  16. TUMS [Concomitant]
     Indication: HYPOCALCAEMIA
     Route: 048
     Dates: start: 20080508
  17. VICODIN [Concomitant]
     Indication: ABDOMINAL PAIN
     Route: 048
     Dates: start: 20080605
  18. PROCRIT [Concomitant]
     Indication: ANAEMIA
     Dates: start: 20080619
  19. PHENERGAN HCL [Concomitant]
     Indication: NAUSEA
     Route: 048
     Dates: start: 20080908
  20. PHENERGAN HCL [Concomitant]
     Route: 048
     Dates: start: 20080807
  21. MIDAZOLAM [Concomitant]
     Indication: ABSCESS DRAINAGE
     Route: 042
     Dates: start: 20080904
  22. MIDAZOLAM [Concomitant]
     Dates: start: 20080808, end: 20080808
  23. FUROSEMIDE [Concomitant]
     Indication: TRANSFUSION
     Dosage: AS USED: 20 MG
     Dates: start: 20080809, end: 20080809
  24. ZOLPIDEM [Concomitant]
     Indication: INSOMNIA
     Route: 048
     Dates: start: 20080810
  25. POTASSIUM CHLORIDE [Concomitant]
     Indication: HYPOKALAEMIA
     Dosage: AS USED: 10 MEQ
     Route: 048
     Dates: start: 20080810
  26. MIRALAX [Concomitant]
     Indication: CONSTIPATION
     Route: 048
     Dates: start: 20080811
  27. MORPHINE [Concomitant]
     Dates: start: 20080808, end: 20080809

REACTIONS (3)
  - NEPHROLITHIASIS [None]
  - PERINEPHRIC ABSCESS [None]
  - RENAL IMPAIRMENT [None]
